FAERS Safety Report 6106952-6 (Version None)
Quarter: 2009Q1

REPORT INFORMATION
  Report Type: 
  Country: None (occurrence: None)
  Receive Date: 20090306
  Receipt Date: 20090306
  Transmission Date: 20090719
  Serious: Yes (Disabling)
  Sender: FDA-Public Use
  Company Number: None

PATIENT
  Sex: Female
  Weight: 59.8748 kg

DRUGS (1)
  1. EFUDEX [Suspect]
     Dosage: 2 TIMES A DAY 2 WEEKS ON FACE
     Dates: start: 20090129, end: 20090206

REACTIONS (5)
  - BURNING SENSATION [None]
  - HYPERAESTHESIA [None]
  - LIP SWELLING [None]
  - SCAB [None]
  - SWELLING FACE [None]
